FAERS Safety Report 11981504 (Version 7)
Quarter: 2016Q3

REPORT INFORMATION
  Report Type: Report from Study
  Country: JP (occurrence: JP)
  Receive Date: 20160130
  Receipt Date: 20160729
  Transmission Date: 20161109
  Serious: Yes (Death, Hospitalization, Other)
  Sender: FDA-Public Use
  Company Number: JP-BRISTOL-MYERS SQUIBB COMPANY-BMS-2016-003226

PATIENT
  Age: 62 Year
  Sex: Female
  Weight: 52.9 kg

DRUGS (3)
  1. BETAMETHASONE SODIUM PHOSPHATE [Suspect]
     Active Substance: BETAMETHASONE SODIUM PHOSPHATE
     Indication: IMMUNE THROMBOCYTOPENIC PURPURA
     Dosage: 4 MG, UNK
     Route: 042
     Dates: start: 20151217, end: 20160125
  2. IPILIMUMAB [Suspect]
     Active Substance: IPILIMUMAB
     Indication: MALIGNANT MELANOMA
     Dosage: 3 MG/KG, UNK
     Route: 065
     Dates: start: 20151124
  3. OPDIVO [Suspect]
     Active Substance: NIVOLUMAB
     Indication: MALIGNANT MELANOMA
     Dosage: 2 MG/KG, UNK
     Route: 065
     Dates: start: 20150212, end: 20150820

REACTIONS (4)
  - Immune thrombocytopenic purpura [Not Recovered/Not Resolved]
  - Malignant neoplasm progression [Fatal]
  - Haemolytic anaemia [Not Recovered/Not Resolved]
  - Sepsis [Recovering/Resolving]

NARRATIVE: CASE EVENT DATE: 20151217
